FAERS Safety Report 15076746 (Version 4)
Quarter: 2020Q4

REPORT INFORMATION
  Report Type: Report from Study
  Country: JP (occurrence: JP)
  Receive Date: 20180627
  Receipt Date: 20201118
  Transmission Date: 20210113
  Serious: Yes (Other)
  Sender: FDA-Public Use
  Company Number: JP-ELI_LILLY_AND_COMPANY-JP201806011903

PATIENT
  Age: 75 Year
  Sex: Female

DRUGS (10)
  1. CETUXIMAB. [Suspect]
     Active Substance: CETUXIMAB
     Dosage: 398 MG, UNKNOWN
     Route: 041
     Dates: start: 20160202
  2. CETUXIMAB. [Suspect]
     Active Substance: CETUXIMAB
     Dosage: 398 MG, UNKNOWN
     Route: 041
     Dates: start: 20160209
  3. CETUXIMAB. [Suspect]
     Active Substance: CETUXIMAB
     Dosage: 397 MG, UNKNOWN
     Route: 041
     Dates: start: 20160223
  4. HEPARINOID [Concomitant]
     Active Substance: CHONDROITIN SULFATE (BOVINE)
     Indication: PROPHYLAXIS
     Dosage: UNK, UNKNOWN
  5. CETUXIMAB. [Suspect]
     Active Substance: CETUXIMAB
     Dosage: 397 MG, UNKNOWN
     Route: 041
     Dates: start: 20160126
  6. CETUXIMAB. [Suspect]
     Active Substance: CETUXIMAB
     Dosage: 380 MG, UNKNOWN
     Route: 041
     Dates: start: 20160308, end: 20160308
  7. CETUXIMAB. [Suspect]
     Active Substance: CETUXIMAB
     Dosage: 397 MG, UNKNOWN
     Route: 041
     Dates: start: 20160216
  8. CETUXIMAB. [Suspect]
     Active Substance: CETUXIMAB
     Indication: HEAD AND NECK CANCER
     Dosage: 620 MG, UNKNOWN
     Route: 041
     Dates: start: 20160118
  9. CETUXIMAB. [Suspect]
     Active Substance: CETUXIMAB
     Dosage: 401 MG, UNKNOWN
     Route: 041
     Dates: start: 20160301
  10. DEXART [Concomitant]
     Active Substance: DEXAMETHASONE SODIUM PHOSPHATE
     Indication: PREMEDICATION
     Dosage: UNK, UNKNOWN
     Route: 042

REACTIONS (16)
  - Decreased appetite [Recovering/Resolving]
  - Stomatitis [Recovering/Resolving]
  - Neutrophil count decreased [Recovered/Resolved]
  - Hypoalbuminaemia [Recovered/Resolved]
  - Dysgeusia [Recovering/Resolving]
  - Dysphagia [Recovering/Resolving]
  - White blood cell count decreased [Recovered/Resolved]
  - Radiation skin injury [Recovering/Resolving]
  - Pharyngeal inflammation [Recovering/Resolving]
  - Dermatitis acneiform [Recovering/Resolving]
  - Laryngeal oedema [Recovering/Resolving]
  - Hyperkalaemia [Recovered/Resolved]
  - Pyrexia [Recovered/Resolved]
  - Paronychia [Unknown]
  - Alanine aminotransferase increased [Recovered/Resolved]
  - Respiratory tract infection [Unknown]

NARRATIVE: CASE EVENT DATE: 2016
